FAERS Safety Report 10258636 (Version 1)
Quarter: 2014Q2

REPORT INFORMATION
  Report Type: Spontaneous
  Country: US (occurrence: None)
  Receive Date: 20140624
  Receipt Date: 20140624
  Transmission Date: 20141212
  Serious: No
  Sender: FDA-Public Use
  Company Number: None

PATIENT
  Age: 53 Year
  Sex: Male
  Weight: 68.2 kg

DRUGS (1)
  1. ZOLPIDEM [Suspect]
     Dosage: 1 TAB AT BEDTIME PO
     Route: 048
     Dates: start: 20130927, end: 20140619

REACTIONS (3)
  - Somnambulism [None]
  - Memory impairment [None]
  - Physical assault [None]
